FAERS Safety Report 12580460 (Version 1)
Quarter: 2016Q3

REPORT INFORMATION
  Report Type: Spontaneous
  Country: FR (occurrence: FR)
  Receive Date: 20160721
  Receipt Date: 20160721
  Transmission Date: 20161109
  Serious: Yes (Hospitalization)
  Sender: FDA-Public Use
  Company Number: FR-ASTRAZENECA-2016SE75929

PATIENT
  Age: 21887 Day
  Sex: Female

DRUGS (13)
  1. XEROQUEL [Suspect]
     Active Substance: QUETIAPINE FUMARATE
     Route: 048
     Dates: end: 20160504
  2. LOXAPAC [Suspect]
     Active Substance: LOXAPINE SUCCINATE
     Route: 048
     Dates: start: 20160404, end: 20160603
  3. DUPHALAC [Suspect]
     Active Substance: LACTULOSE
     Route: 048
     Dates: end: 20160401
  4. METEOSPASMYL [Suspect]
     Active Substance: ALVERINE CITRATE\DIMETHICONE
     Route: 048
     Dates: end: 20160330
  5. BEVITINE [Suspect]
     Active Substance: THIAMINE
     Route: 048
     Dates: start: 20160316
  6. NICOTINE. [Suspect]
     Active Substance: NICOTINE
     Dosage: ONE DOSAGE FORM TWO TIMES A DAY
     Route: 048
  7. EUDUCTYL ADULTES [Suspect]
     Active Substance: POTASSIUM BITARTRATE\SODIUM BICARBONATE
     Route: 054
     Dates: end: 20160406
  8. TERCIAN [Suspect]
     Active Substance: CYAMEMAZINE
     Route: 065
     Dates: end: 20160401
  9. VALIUM [Suspect]
     Active Substance: DIAZEPAM
     Dosage: 1 TABLET OF 10 MG IN THE MORNING, 1 AT NOON AND TWO IN THE EVENING
     Route: 048
  10. NORMACOL [Suspect]
     Active Substance: KARAYA GUM
     Route: 054
  11. DEPAKOTE [Suspect]
     Active Substance: DIVALPROEX SODIUM
     Dosage: 250 MG TWO TIMES A DAY, PROGRESSIVE DOSE REDUCTION UNTIL DISCONTINUATION
     Route: 048
     Dates: start: 20160404, end: 20160623
  12. LOVENOX [Suspect]
     Active Substance: ENOXAPARIN SODIUM
     Dosage: 4000.0IU UNKNOWN
     Route: 058
     Dates: end: 20160415
  13. LANSOYL FRAMBOISE [Suspect]
     Active Substance: MINERAL OIL
     Route: 048

REACTIONS (2)
  - Neutropenia [Not Recovered/Not Resolved]
  - Macrocytosis [Unknown]

NARRATIVE: CASE EVENT DATE: 20160407
